FAERS Safety Report 21889712 (Version 1)
Quarter: 2023Q1

REPORT INFORMATION
  Report Type: Report from Study
  Country: US (occurrence: US)
  Receive Date: 20230120
  Receipt Date: 20230120
  Transmission Date: 20230418
  Serious: No
  Sender: FDA-Public Use
  Company Number: US-ABBVIE-4246748

PATIENT
  Sex: Male

DRUGS (1)
  1. HUMIRA [Suspect]
     Active Substance: ADALIMUMAB
     Indication: Product used for unknown indication
     Dosage: CF?2022 WAS THE BOTH EVENT ONSET DATE.
     Route: 058
     Dates: start: 20220814

REACTIONS (2)
  - Sleep disorder [Unknown]
  - Drug eruption [Unknown]
